FAERS Safety Report 25342484 (Version 2)
Quarter: 2025Q3

REPORT INFORMATION
  Report Type: Spontaneous
  Country: US (occurrence: US)
  Receive Date: 20250521
  Receipt Date: 20250820
  Transmission Date: 20251020
  Serious: No
  Sender: CATALYST PHARMA
  Company Number: US-CATALYST PHARMACEUTICALS-US-CATA-25-00315

PATIENT
  Age: 5 Year
  Sex: Male
  Weight: 19.995 kg

DRUGS (4)
  1. AGAMREE [Suspect]
     Active Substance: VAMOROLONE
     Indication: Duchenne muscular dystrophy
     Dosage: 2 ML DAILY
     Route: 048
     Dates: start: 20241129
  2. MELATONIN GUMMIES [Concomitant]
     Indication: Sleep disorder
     Dosage: 1MG DAILY
     Route: 048
  3. VITAMINS [Concomitant]
     Active Substance: VITAMINS
     Indication: Hypovitaminosis
     Dosage: 1 TABLET DAILY
     Route: 048
  4. VITAMIN C [Concomitant]
     Active Substance: ASCORBIC ACID
     Indication: Hypovitaminosis
     Dosage: 500MG DAILY
     Route: 048

REACTIONS (3)
  - Conjunctivitis [Recovered/Resolved]
  - Nasopharyngitis [Recovered/Resolved]
  - Gastroenteritis viral [Recovered/Resolved]

NARRATIVE: CASE EVENT DATE: 20241213
